FAERS Safety Report 7792326-9 (Version None)
Quarter: 2011Q4

REPORT INFORMATION
  Report Type: 
  Country: None (occurrence: None)
  Receive Date: 20111003
  Receipt Date: 20110923
  Transmission Date: 20120403
  Serious: Yes (Other)
  Sender: FDA-Public Use
  Company Number: GB-ALLERGAN-1112753US

PATIENT
  Age: 44 Year
  Sex: Female

DRUGS (3)
  1. ARTIFICIAL TEARS [Concomitant]
     Indication: PRODUCT USED FOR UNKNOWN INDICATION
     Dosage: UNK
     Route: 047
  2. PREDNISOLONE [Suspect]
     Indication: PRODUCT USED FOR UNKNOWN INDICATION
     Dosage: UNK
     Route: 047
  3. FLUOROQUINOLONES [Concomitant]

REACTIONS (3)
  - CORNEAL STRIAE [None]
  - EYE OPERATION COMPLICATION [None]
  - CORNEAL DISORDER [None]
